FAERS Safety Report 5798891-5 (Version None)
Quarter: 2008Q2

REPORT INFORMATION
  Report Type: 
  Country: None (occurrence: None)
  Receive Date: 20080630
  Receipt Date: 20080617
  Transmission Date: 20081010
  Serious: Yes (Death)
  Sender: FDA-Public Use
  Company Number: 2007-04188

PATIENT
  Age: 62 Year
  Sex: Male

DRUGS (28)
  1. VELCADE [Suspect]
     Indication: MULTIPLE MYELOMA
     Dosage: 1.2 MG/M2, INTRAVENOUS
     Route: 042
     Dates: start: 20071121, end: 20071127
  2. METHYLPREDNISOLONE [Concomitant]
  3. LAMIVUDINE [Concomitant]
  4. SULFAMETHOXAZOLE W/TRIMETHOPRIM (SULFAMETHOXAZOLE, TRIMETHOPRIM) [Concomitant]
  5. ITRACONAZOLE [Concomitant]
  6. OMEPRAZOLE [Concomitant]
  7. MAGNESIUM OXIDE (MAGNESIUM OXIDE) [Concomitant]
  8. ZOLPIDEM TARTRATE [Concomitant]
  9. GASHAJINKIGAN (HERBAL EXTRACTS NOS) [Concomitant]
  10. POTASSIUM ASPARTATE AND MAGNESIUM ASPARTATE [Concomitant]
  11. ACETAMINOPHEN [Concomitant]
  12. FENTANYL [Concomitant]
  13. FIRSTCIN (CEFOZOPRAN HYDROCHLORIDE) [Concomitant]
  14. DEXAMETHASONE [Concomitant]
  15. PANTHENOL (PANTHENOL) [Concomitant]
  16. SODIUM BICARBONATE [Concomitant]
  17. VERAPAMIL HYDROCHLORIDE [Concomitant]
  18. RYTHMODAN P (DISOPYRAMIDE PHOSPHATE) [Concomitant]
  19. MIDAZOLAM HCL [Concomitant]
  20. DIAZEPAM [Concomitant]
  21. OMEPRAL (OMEPRAZOLE) [Concomitant]
  22. ORGARAN [Concomitant]
  23. SULBACTAM SODIUM AMPICILLIN SODIUM [Concomitant]
  24. CIPROFLOXACIN HCL [Concomitant]
  25. VORICONAZOLE (VORICONAZOLE) [Concomitant]
  26. RANITIDINE HYDROCHLORIDE [Concomitant]
  27. POTASSIUM CHLORIDE [Concomitant]
  28. FUROSEMIDE [Concomitant]

REACTIONS (7)
  - CARDIAC FAILURE [None]
  - CONSTIPATION [None]
  - DISEASE PROGRESSION [None]
  - EPISTAXIS [None]
  - RESPIRATORY FAILURE [None]
  - RESPIRATORY TRACT HAEMORRHAGE [None]
  - TUMOUR LYSIS SYNDROME [None]
